FAERS Safety Report 8377310-9 (Version None)
Quarter: 2012Q2

REPORT INFORMATION
  Report Type: 
  Country: None (occurrence: None)
  Receive Date: 20120522
  Receipt Date: 20120507
  Transmission Date: 20120825
  Serious: Yes (Other)
  Sender: FDA-Public Use
  Company Number: US-WATSON-2012-08167

PATIENT
  Age: 13 Year
  Sex: Male

DRUGS (1)
  1. BACLOFEN [Suspect]
     Indication: MUSCLE SPASTICITY
     Dosage: 200 MG, DAILY
     Route: 065

REACTIONS (4)
  - PYREXIA [None]
  - DRUG WITHDRAWAL SYNDROME [None]
  - TACHYCARDIA [None]
  - MUSCLE SPASTICITY [None]
